FAERS Safety Report 7040389-0 (Version None)
Quarter: 2010Q4

REPORT INFORMATION
  Report Type: 
  Country: None (occurrence: None)
  Receive Date: 20101012
  Receipt Date: 20101001
  Transmission Date: 20110411
  Serious: Yes (Hospitalization)
  Sender: FDA-Public Use
  Company Number: PHHY2010CO65633

PATIENT
  Sex: Female

DRUGS (14)
  1. ACLASTA [Suspect]
     Indication: OSTEOPOROSIS
     Dosage: 5 MG/ 100 ML
     Route: 042
     Dates: start: 20100923
  2. ACETYLSALICYLIC ACID SRT [Concomitant]
  3. ATORVASTATIN [Concomitant]
  4. CARVEDILOL [Concomitant]
  5. REPARIL [Concomitant]
  6. ESPIRONOLACTONA [Concomitant]
  7. FLUOXETINE [Concomitant]
  8. JEVITY [Concomitant]
  9. FUROSEMIDE [Concomitant]
  10. ENOXAPARIN SODIUM [Concomitant]
  11. LEVOTHYROXINE [Concomitant]
  12. LOSARTAN [Concomitant]
  13. OMEPRAZOLE [Concomitant]
  14. PREDNISOLONE [Concomitant]

REACTIONS (2)
  - ANAEMIA [None]
  - SUBCUTANEOUS HAEMATOMA [None]
